FAERS Safety Report 20831125 (Version 2)
Quarter: 2022Q2

REPORT INFORMATION
  Report Type: Spontaneous
  Country: SA (occurrence: SA)
  Receive Date: 20220515
  Receipt Date: 20220518
  Transmission Date: 20220721
  Serious: Yes (Other)
  Sender: FDA-Public Use
  Company Number: SA-SIMCERE OF AMERICA, INC.-2022PRN00148

PATIENT
  Age: 35 Year
  Sex: Female

DRUGS (1)
  1. CELECOXIB [Suspect]
     Active Substance: CELECOXIB
     Indication: Pain
     Dosage: 200 MG, 1X/DAY
     Route: 065
     Dates: start: 201904

REACTIONS (1)
  - Blindness transient [Recovered/Resolved]
